FAERS Safety Report 10584088 (Version 1)
Quarter: 2014Q4

REPORT INFORMATION
  Report Type: Spontaneous
  Country: US (occurrence: None)
  Receive Date: 20141113
  Receipt Date: 20141113
  Transmission Date: 20150529
  Serious: No
  Sender: FDA-Public Use
  Company Number: None

PATIENT
  Age: 57 Year
  Sex: Male
  Weight: 80.74 kg

DRUGS (1)
  1. FLUTICASONE PROPIONATE. [Suspect]
     Active Substance: FLUTICASONE PROPIONATE
     Indication: SINUSITIS
     Dosage: 1 SPRAY INTO EACH NOSTRIL  TWICE DAILY  NASAL
     Route: 045
     Dates: start: 20140211, end: 20141020

REACTIONS (2)
  - Oral herpes [None]
  - Herpes simplex [None]

NARRATIVE: CASE EVENT DATE: 20141019
